FAERS Safety Report 13214621 (Version 2)
Quarter: 2017Q2

REPORT INFORMATION
  Report Type: Spontaneous
  Country: CA (occurrence: CA)
  Receive Date: 20170209
  Receipt Date: 20170505
  Transmission Date: 20170830
  Serious: Yes (Death, Other)
  Sender: FDA-Public Use
  Company Number: CA-ALLERGAN-1600581US

PATIENT
  Age: 38 Year
  Sex: Male

DRUGS (3)
  1. BOTOX [Suspect]
     Active Substance: ONABOTULINUMTOXINA
     Dosage: 25 UNITS, SINGLE
     Route: 030
     Dates: start: 20151002, end: 20151002
  2. BOTOX [Suspect]
     Active Substance: ONABOTULINUMTOXINA
     Indication: MUSCLE SPASMS
     Dosage: UNK, SINGLE
     Route: 030
     Dates: start: 20151102, end: 20151102
  3. BOTOX [Suspect]
     Active Substance: ONABOTULINUMTOXINA
     Dosage: 50 UNITS, SINGLE
     Route: 030
     Dates: start: 20151016, end: 20151016

REACTIONS (15)
  - Asthenia [Not Recovered/Not Resolved]
  - Influenza like illness [Recovering/Resolving]
  - Photosensitivity reaction [Recovering/Resolving]
  - Weight decreased [Recovering/Resolving]
  - Completed suicide [Fatal]
  - Guillain-Barre syndrome [Unknown]
  - Tremor [Recovering/Resolving]
  - Disturbance in attention [Recovering/Resolving]
  - Decreased appetite [Recovered/Resolved]
  - Fatigue [Not Recovered/Not Resolved]
  - Panic attack [Recovered/Resolved]
  - Anxiety [Recovered/Resolved]
  - Insomnia [Not Recovered/Not Resolved]
  - Feeling abnormal [Recovering/Resolving]
  - Botulism [Unknown]

NARRATIVE: CASE EVENT DATE: 2015
